FAERS Safety Report 15578024 (Version 1)
Quarter: 2018Q4

REPORT INFORMATION
  Report Type: Report from Study
  Country: CA (occurrence: CA)
  Receive Date: 20181102
  Receipt Date: 20181102
  Transmission Date: 20190205
  Serious: Yes (Other)
  Sender: FDA-Public Use
  Company Number: CA-ROCHE-2205570

PATIENT
  Age: 61 Year
  Sex: Female

DRUGS (1)
  1. ATEZOLIZUMAB. [Suspect]
     Active Substance: ATEZOLIZUMAB
     Indication: TRANSITIONAL CELL CARCINOMA
     Dosage: RECEIVED 8 INFUSIONS
     Route: 042
     Dates: start: 201708, end: 201801

REACTIONS (1)
  - Sarcoidosis [Recovering/Resolving]
